FAERS Safety Report 6022392-2 (Version None)
Quarter: 2008Q4

REPORT INFORMATION
  Report Type: 
  Country: None (occurrence: None)
  Receive Date: 20081230
  Receipt Date: 20081212
  Transmission Date: 20090506
  Serious: Yes (Hospitalization)
  Sender: FDA-Public Use
  Company Number: JP-CELGENEUS-087-50794-08120924

PATIENT
  Sex: Male

DRUGS (17)
  1. VIDAZA [Suspect]
     Indication: MYELODYSPLASTIC SYNDROME
     Route: 051
     Dates: start: 20081203, end: 20081209
  2. SENNOSIDE [Suspect]
     Indication: CONSTIPATION
     Route: 048
  3. RABEPRAZOLE SODIUM [Suspect]
     Indication: PROPHYLAXIS
     Route: 048
  4. CARBOCISTEINE [Suspect]
     Route: 048
  5. CLARITHROMYCIN [Suspect]
     Route: 048
  6. MAGNESIUM OXIDE [Suspect]
     Indication: CONSTIPATION
     Route: 048
  7. SODIUM PICOSULFATE [Suspect]
     Indication: CONSTIPATION
     Route: 048
     Dates: start: 20081207, end: 20081211
  8. MEROPENEM TRIHYDRATE [Suspect]
     Indication: INFECTION PROPHYLAXIS
     Route: 051
  9. VANCOMYCIN HYDROCHLORIDE [Suspect]
     Indication: INFECTION PROPHYLAXIS
     Route: 051
  10. COLIBACILLUS VACCINE/HYDROCORTISONE [Concomitant]
     Route: 054
     Dates: start: 20081209, end: 20081214
  11. ISOTONIC SODIUM CHLORIDE SOLUTION [Concomitant]
     Indication: DRUG USE FOR UNKNOWN INDICATION
     Route: 051
  12. POTASSIUM CHLORIDE [Concomitant]
     Indication: HYPOKALAEMIA
     Route: 051
  13. DIPHENHYDRAMINE HCL [Concomitant]
     Indication: ECZEMA ASTEATOTIC
  14. WHITE PETROLATUM [Concomitant]
     Indication: DRY SKIN PROPHYLAXIS
  15. HYDROCORTISONE ACETATE [Concomitant]
     Indication: ECZEMA
  16. MOMETASONE FUROATE [Concomitant]
     Indication: ECZEMA
  17. AZULENE SULFONATE SODIUM [Concomitant]
     Indication: INFECTION PROPHYLAXIS
     Route: 048

REACTIONS (1)
  - URINARY RETENTION [None]
